FAERS Safety Report 10511038 (Version 2)
Quarter: 2015Q1

REPORT INFORMATION
  Report Type: Spontaneous
  Country: US (occurrence: US)
  Receive Date: 20141010
  Receipt Date: 20150225
  Transmission Date: 20150720
  Serious: No
  Sender: FDA-Public Use
  Company Number: US-PFIZER INC-2014276030

PATIENT
  Age: 84 Year
  Sex: Female

DRUGS (3)
  1. ARTHROTEC [Suspect]
     Active Substance: DICLOFENAC SODIUM\MISOPROSTOL
     Dosage: UNK
  2. CYTOTEC [Concomitant]
     Active Substance: MISOPROSTOL
     Indication: ULCER
     Dosage: 300 ?G, 3X/DAY
     Dates: start: 20140820
  3. DICLOFENAC SODIUM. [Suspect]
     Active Substance: DICLOFENAC SODIUM
     Dosage: UNK

REACTIONS (3)
  - Hypoacusis [Unknown]
  - Drug hypersensitivity [Unknown]
  - Tinnitus [Unknown]

NARRATIVE: CASE EVENT DATE: 20131031
